FAERS Safety Report 9326102 (Version 2)
Quarter: 2013Q2

REPORT INFORMATION
  Report Type: Spontaneous
  Country: FR (occurrence: FR)
  Receive Date: 20130604
  Receipt Date: 20130621
  Transmission Date: 20140414
  Serious: Yes (Death, Hospitalization)
  Sender: FDA-Public Use
  Company Number: FR-B.I. PHARMACEUTICALS,INC./RIDGEFIELD-2013-FF-01521FF

PATIENT
  Age: 87 Year
  Sex: Male
  Weight: 68 kg

DRUGS (7)
  1. PRADAXA [Suspect]
     Indication: ATRIAL FIBRILLATION
     Dosage: 220 MG
     Route: 048
     Dates: start: 201203, end: 201305
  2. BISOPROLOL [Concomitant]
     Dosage: 10 MG
  3. LASILIX [Concomitant]
     Dosage: 100 MG
  4. TARDYFERON [Concomitant]
  5. CRESTOR [Concomitant]
     Dosage: 5 MG
  6. ENALAPRIL [Concomitant]
     Dosage: 5 MG
  7. HEMIGOXINE [Concomitant]

REACTIONS (5)
  - Cerebrovascular accident [Fatal]
  - Peripheral ischaemia [Fatal]
  - Anaemia [Unknown]
  - Gastrointestinal haemorrhage [Unknown]
  - Gastric ulcer [Unknown]
